FAERS Safety Report 13101112 (Version 1)
Quarter: 2017Q1

REPORT INFORMATION
  Report Type: Spontaneous
  Country: US (occurrence: US)
  Receive Date: 20170110
  Receipt Date: 20170110
  Transmission Date: 20170428
  Serious: Yes (Other)
  Sender: FDA-Public Use
  Company Number: US-ASTRAZENECA-2017SE00826

PATIENT
  Age: 75 Year
  Sex: Female

DRUGS (12)
  1. POTASSIUM [Concomitant]
     Active Substance: POTASSIUM
  2. LABETALOL [Concomitant]
     Active Substance: LABETALOL\LABETALOL HYDROCHLORIDE
     Indication: ILL-DEFINED DISORDER
     Dosage: 200.0MG UNKNOWN
  3. ASPIRIN. [Concomitant]
     Active Substance: ASPIRIN
  4. CRESTOR [Suspect]
     Active Substance: ROSUVASTATIN CALCIUM
     Dosage: DOSE UNKNOWN
     Route: 048
  5. MAGNESIUM [Concomitant]
     Active Substance: MAGNESIUM
  6. AMIODARONE [Concomitant]
     Active Substance: AMIODARONE
     Dates: start: 201601
  7. LEVATHYROXINE [Concomitant]
  8. DIOVAN [Concomitant]
     Active Substance: VALSARTAN
  9. CALCIUM [Concomitant]
     Active Substance: CALCIUM
  10. FUROSAMIDE [Concomitant]
  11. METFORMIN [Concomitant]
     Active Substance: METFORMIN HYDROCHLORIDE
  12. ELIQUIS [Concomitant]
     Active Substance: APIXABAN
     Dosage: 5.0MG UNKNOWN

REACTIONS (1)
  - Pericardial haemorrhage [Unknown]
